FAERS Safety Report 15300887 (Version 1)
Quarter: 2018Q3

REPORT INFORMATION
  Report Type: Spontaneous
  Country: DE (occurrence: DE)
  Receive Date: 20180821
  Receipt Date: 20180821
  Transmission Date: 20181010
  Serious: Yes (Hospitalization)
  Sender: FDA-Public Use
  Company Number: PHHY2018DE074264

PATIENT
  Age: 73 Year
  Sex: Female

DRUGS (13)
  1. TRIAMTEREN [Concomitant]
     Active Substance: TRIAMTERENE
     Indication: HYPERTENSION
     Dosage: 50 MG, QD
     Route: 048
     Dates: start: 20140226
  2. BEVACIZUMAB. [Suspect]
     Active Substance: BEVACIZUMAB
     Indication: COLORECTAL CANCER METASTATIC
     Dosage: 400 MG, Q2W
     Route: 042
     Dates: start: 20140324
  3. FOLINIC ACID [Concomitant]
     Active Substance: LEUCOVORIN
     Indication: COLORECTAL CANCER
     Dosage: 700 MG, Q2W
     Route: 042
     Dates: start: 20140324
  4. IRINOTECAN [Concomitant]
     Active Substance: IRINOTECAN
     Dosage: `300 MG, Q2W
     Route: 042
     Dates: start: 20140604
  5. GRANISETRON [Suspect]
     Active Substance: GRANISETRON
     Indication: VOMITING
     Dosage: 3 MG, UNK
     Route: 042
  6. BEVACIZUMAB. [Suspect]
     Active Substance: BEVACIZUMAB
     Dosage: 430 MG, Q2W
     Route: 042
     Dates: start: 20140521
  7. 5?FU [Concomitant]
     Active Substance: FLUOROURACIL
     Indication: COLORECTAL CANCER
     Dosage: 4500 MG, Q2W
     Route: 065
     Dates: start: 20140324
  8. 5?FU [Concomitant]
     Active Substance: FLUOROURACIL
     Dosage: 4500 MG, Q2W
     Route: 065
     Dates: start: 20140606
  9. PREDNISOLON [Concomitant]
     Active Substance: PREDNISOLONE
     Indication: INFECTION
     Dosage: UNK UNK, BID
     Route: 065
  10. IRINOTECAN [Concomitant]
     Active Substance: IRINOTECAN
     Indication: COLORECTAL CANCER
     Dosage: `300 MG, Q2W
     Route: 042
     Dates: start: 20140324
  11. FOLINIC ACID [Concomitant]
     Active Substance: LEUCOVORIN
     Dosage: 700 MG, Q2W
     Route: 042
     Dates: start: 20140606
  12. CLOTRIMAZOL [Concomitant]
     Active Substance: CLOTRIMAZOLE
     Indication: INFECTION
     Dosage: UNK
     Route: 065
     Dates: start: 20150430
  13. CLOTRIMAZOL [Concomitant]
     Active Substance: CLOTRIMAZOLE
     Dosage: UNK
     Route: 065
     Dates: start: 20150504

REACTIONS (2)
  - Alopecia [Not Recovered/Not Resolved]
  - Constipation [Recovered/Resolved]

NARRATIVE: CASE EVENT DATE: 20140507
